FAERS Safety Report 10383276 (Version 2)
Quarter: 2014Q3

REPORT INFORMATION
  Report Type: Spontaneous
  Country: JP (occurrence: JP)
  Receive Date: 20140814
  Receipt Date: 20140905
  Transmission Date: 20150326
  Serious: Yes (Other)
  Sender: FDA-Public Use
  Company Number: PHHY2014JP099426

PATIENT
  Age: 55 Year
  Sex: Female

DRUGS (1)
  1. AFINITOR [Suspect]
     Active Substance: EVEROLIMUS
     Indication: BREAST CANCER RECURRENT
     Dosage: 10 MG, DAILY
     Route: 048
     Dates: start: 20140707, end: 20140728

REACTIONS (2)
  - Face oedema [Recovered/Resolved]
  - Stomatitis [Recovering/Resolving]

NARRATIVE: CASE EVENT DATE: 20140728
